FAERS Safety Report 4687021-9 (Version None)
Quarter: 2005Q2

REPORT INFORMATION
  Report Type: 
  Country: None (occurrence: None)
  Receive Date: 20050606
  Receipt Date: 20050525
  Transmission Date: 20051028
  Serious: Yes (Death)
  Sender: FDA-Public Use
  Company Number: 2003186135FR

PATIENT
  Age: 35 Year
  Sex: Female

DRUGS (4)
  1. XANAX [Suspect]
     Indication: ILL-DEFINED DISORDER
     Dosage: (0.25 MG), ORAL
     Route: 048
     Dates: end: 20030414
  2. METHADONE HCL [Suspect]
     Indication: ILL-DEFINED DISORDER
     Dosage: (5 MG), ORAL
     Route: 048
     Dates: end: 20030414
  3. NORDAZ (NORDAZEPAM) [Suspect]
     Indication: ILL-DEFINED DISORDER
     Dosage: (7.5 MG), ORAL
     Route: 048
     Dates: end: 20030414
  4. CANNABIS (CANNABIS) [Suspect]
     Indication: ILL-DEFINED DISORDER

REACTIONS (4)
  - CARDIAC ARREST [None]
  - DRUG ABUSER [None]
  - DRUG TOXICITY [None]
  - MULTI-ORGAN FAILURE [None]
